FAERS Safety Report 11700659 (Version 1)
Quarter: 2015Q4

REPORT INFORMATION
  Report Type: Spontaneous
  Country: US (occurrence: None)
  Receive Date: 20151104
  Receipt Date: 20151104
  Transmission Date: 20160304
  Serious: Yes (Other)
  Sender: FDA-Public Use
  Company Number: None

PATIENT
  Age: 61 Year
  Sex: Female
  Weight: 83.92 kg

DRUGS (8)
  1. VITAMIN D3 [Concomitant]
     Active Substance: CHOLECALCIFEROL
  2. NIFEDIPINE ER OSMOTIC [Concomitant]
  3. PRAVASTATIN [Suspect]
     Active Substance: PRAVASTATIN\PRAVASTATIN SODIUM
     Indication: BLOOD CHOLESTEROL INCREASED
     Route: 048
     Dates: start: 20150902, end: 20150925
  4. MULTIVITAMIN [Concomitant]
     Active Substance: VITAMINS
  5. ESTRADIOL. [Concomitant]
     Active Substance: ESTRADIOL
  6. ULTIMATE COLON CARE [Concomitant]
  7. BISOPROLOL FUMARATE. [Concomitant]
     Active Substance: BISOPROLOL FUMARATE
  8. VITAMIN A [Concomitant]
     Active Substance: VITAMIN A

REACTIONS (1)
  - Urine flow decreased [None]

NARRATIVE: CASE EVENT DATE: 20150910
